FAERS Safety Report 12996789 (Version 9)
Quarter: 2018Q4

REPORT INFORMATION
  Report Type: Spontaneous
  Country: CA (occurrence: CA)
  Receive Date: 20161205
  Receipt Date: 20181123
  Transmission Date: 20190204
  Serious: Yes (Hospitalization, Other)
  Sender: FDA-Public Use
  Company Number: CA-ROCHE-1862236

PATIENT
  Age: 19 Year
  Sex: Female

DRUGS (13)
  1. XOLAIR [Suspect]
     Active Substance: OMALIZUMAB
     Route: 058
     Dates: start: 20150422
  2. XOLAIR [Suspect]
     Active Substance: OMALIZUMAB
     Route: 058
     Dates: start: 20150730
  3. XOLAIR [Suspect]
     Active Substance: OMALIZUMAB
     Route: 058
     Dates: start: 2016
  4. XOLAIR [Suspect]
     Active Substance: OMALIZUMAB
     Route: 058
     Dates: start: 20160602
  5. XOLAIR [Suspect]
     Active Substance: OMALIZUMAB
     Route: 058
     Dates: start: 20150408
  6. XOLAIR [Suspect]
     Active Substance: OMALIZUMAB
     Route: 058
     Dates: start: 20151008
  7. XOLAIR [Suspect]
     Active Substance: OMALIZUMAB
     Route: 058
     Dates: start: 20170420
  8. XOLAIR [Suspect]
     Active Substance: OMALIZUMAB
     Route: 058
     Dates: start: 201607
  9. XOLAIR [Suspect]
     Active Substance: OMALIZUMAB
     Route: 058
     Dates: start: 20160519
  10. PREDNISONE. [Suspect]
     Active Substance: PREDNISONE
     Indication: PRODUCT USED FOR UNKNOWN INDICATION
     Route: 065
  11. XOLAIR [Suspect]
     Active Substance: OMALIZUMAB
     Indication: ASTHMA
     Route: 058
     Dates: start: 20141008
  12. XOLAIR [Suspect]
     Active Substance: OMALIZUMAB
     Route: 058
     Dates: start: 20170614
  13. XOLAIR [Suspect]
     Active Substance: OMALIZUMAB
     Route: 058
     Dates: start: 20170628

REACTIONS (44)
  - Respiratory arrest [Unknown]
  - Forced expiratory volume decreased [Unknown]
  - Asthma [Unknown]
  - Influenza [Unknown]
  - Body temperature decreased [Unknown]
  - Bronchitis [Unknown]
  - Sinusitis [Unknown]
  - Sensitivity to weather change [Unknown]
  - Urinary tract infection [Unknown]
  - Erythema [Unknown]
  - Nasopharyngitis [Unknown]
  - Exposure to allergen [Unknown]
  - Body temperature increased [Unknown]
  - Ageusia [Unknown]
  - Rhinorrhoea [Recovering/Resolving]
  - Dyspnoea exertional [Unknown]
  - Hypersensitivity [Unknown]
  - Eczema [Unknown]
  - Dyspnoea at rest [Unknown]
  - Lymphadenopathy [Unknown]
  - Seasonal allergy [Unknown]
  - Poor quality sleep [Unknown]
  - Bronchospasm [Unknown]
  - Pyrexia [Recovering/Resolving]
  - Malaise [Unknown]
  - Rhinitis [Unknown]
  - Cough [Unknown]
  - Sputum discoloured [Recovering/Resolving]
  - Nasal polyps [Unknown]
  - Middle insomnia [Unknown]
  - Rubber sensitivity [Unknown]
  - Dysphonia [Unknown]
  - Anosmia [Unknown]
  - Exercise tolerance decreased [Unknown]
  - Chills [Unknown]
  - Headache [Unknown]
  - Laryngitis [Recovering/Resolving]
  - Upper-airway cough syndrome [Unknown]
  - Nasal congestion [Not Recovered/Not Resolved]
  - Wheezing [Unknown]
  - Abdominal pain [Unknown]
  - Chest discomfort [Unknown]
  - Nasal oedema [Unknown]
  - Productive cough [Unknown]

NARRATIVE: CASE EVENT DATE: 201501
